FAERS Safety Report 8170253-5 (Version None)
Quarter: 2012Q1

REPORT INFORMATION
  Report Type: 
  Country: None (occurrence: None)
  Receive Date: 20120228
  Receipt Date: 20120223
  Transmission Date: 20120608
  Serious: Yes (Death)
  Sender: FDA-Public Use
  Company Number: PHHY2012AR015987

PATIENT
  Sex: Male

DRUGS (1)
  1. EXELON [Suspect]
     Indication: COGNITIVE DISORDER
     Dosage: 3 MG, DAILY

REACTIONS (2)
  - CARDIAC FAILURE [None]
  - ASTHENIA [None]
